FAERS Safety Report 14674983 (Version 18)
Quarter: 2020Q2

REPORT INFORMATION
  Report Type: Spontaneous
  Country: PL (occurrence: PL)
  Receive Date: 20180323
  Receipt Date: 20200625
  Transmission Date: 20200713
  Serious: Yes (Other)
  Sender: FDA-Public Use
  Company Number: PL-AUROBINDO-AUR-APL-2018-011429

PATIENT
  Age: 57 Year
  Sex: Male
  Weight: 86 kg

DRUGS (28)
  1. DIAZEPAM. [Interacting]
     Active Substance: DIAZEPAM
     Indication: NIGHTMARE
     Dosage: 10 MILLIGRAM, ONCE A DAY, BEFORE BED
     Route: 065
  2. DULOXETINE HYDROCHLORIDE. [Concomitant]
     Active Substance: DULOXETINE HYDROCHLORIDE
     Indication: PAIN
  3. DIAZEPAM. [Interacting]
     Active Substance: DIAZEPAM
     Indication: INITIAL INSOMNIA
     Dosage: UNK
     Route: 065
  4. MIANSERIN [Interacting]
     Active Substance: MIANSERIN
     Indication: INSOMNIA
     Dosage: 20 MILLIGRAM, ONCE A DAY, HALF AN HOUR BEFORE BED
     Route: 065
  5. MIANSERIN [Interacting]
     Active Substance: MIANSERIN
     Indication: SLEEP DISORDER
  6. PARACETAMOL [Concomitant]
     Active Substance: ACETAMINOPHEN
     Indication: PRODUCT USED FOR UNKNOWN INDICATION
     Dosage: UNK
     Route: 065
  7. MIANSERIN [Interacting]
     Active Substance: MIANSERIN
     Indication: NIGHTMARE
     Dosage: 20 MILLIGRAM, 20 MG, 20 DAYS
     Route: 065
  8. ZOFENIL [Concomitant]
     Active Substance: ZOFENOPRIL
     Indication: PRODUCT USED FOR UNKNOWN INDICATION
     Dosage: UNK
     Route: 065
  9. DULOXETINE HYDROCHLORIDE. [Concomitant]
     Active Substance: DULOXETINE HYDROCHLORIDE
     Indication: PAIN MANAGEMENT
     Dosage: 30 MILLIGRAM, IN THE MORNING
     Route: 065
  10. TRAZODONE HYDROCHLORIDE. [Concomitant]
     Active Substance: TRAZODONE HYDROCHLORIDE
     Indication: INSOMNIA
     Dosage: 100 MILLIGRAM, 75 MG, QD THREE HOURS BEFORE PLANNED BEDTIME
     Route: 065
  11. ZOLPIDEM [Interacting]
     Active Substance: ZOLPIDEM TARTRATE
     Indication: SLEEP DISORDER
     Dosage: 10 MILLIGRAM, ONCE A DAY, BEFORE BED
     Route: 048
  12. ZOLPIDEM [Interacting]
     Active Substance: ZOLPIDEM TARTRATE
     Indication: FIBROMYALGIA
     Dosage: 10 MILLIGRAM, ONCE A DAY, BEFORE BED
     Route: 048
  13. DIAZEPAM. [Interacting]
     Active Substance: DIAZEPAM
     Indication: SLEEP DISORDER
  14. DEPREXETIN [Interacting]
     Active Substance: FLUOXETINE HYDROCHLORIDE
     Indication: PAIN
     Dosage: 20 MILLIGRAM, TWO TIMES A DAY (40 MG OCNE A DAY)
     Route: 048
     Dates: start: 20171103, end: 20171122
  15. TRAZODONE HYDROCHLORIDE. [Concomitant]
     Active Substance: TRAZODONE HYDROCHLORIDE
     Dosage: 75 MILLIGRAM, ONCE A DAY, 75 MG, QD THREE HOURS BEFORE PLANNED BEDTIME
     Route: 065
  16. FLUOXETINE [Interacting]
     Active Substance: FLUOXETINE HYDROCHLORIDE
     Indication: FIBROMYALGIA
     Dosage: 40 MILLIGRAM, ONCE A DAY (20 MG, 2X PER DAY, IN THE MORNING AND EVENING)
     Route: 065
  17. DEPREXETIN [Interacting]
     Active Substance: FLUOXETINE HYDROCHLORIDE
     Indication: FIBROMYALGIA
  18. BISOCARD [Concomitant]
     Active Substance: BISOPROLOL
     Indication: PRODUCT USED FOR UNKNOWN INDICATION
     Dosage: UNK
     Route: 065
  19. ZOLPIDEM [Interacting]
     Active Substance: ZOLPIDEM TARTRATE
     Indication: DIABETES MELLITUS
  20. SIMVASTATIN. [Concomitant]
     Active Substance: SIMVASTATIN
     Indication: PRODUCT USED FOR UNKNOWN INDICATION
     Dosage: UNK
     Route: 065
  21. METFORMIN [Concomitant]
     Active Substance: METFORMIN HYDROCHLORIDE
     Indication: TYPE 2 DIABETES MELLITUS
  22. FLUOXETINE [Suspect]
     Active Substance: FLUOXETINE HYDROCHLORIDE
     Indication: PAIN
     Dosage: 40 MILLIGRAM, TWO TIMES A DAY, 2 X 20 MG IN THE MORNING AND IN THE EVENING
     Route: 065
     Dates: start: 20171103, end: 20171122
  23. FLUOXETINE [Interacting]
     Active Substance: FLUOXETINE HYDROCHLORIDE
     Indication: DIABETES MELLITUS
  24. ZOLPIDEM [Interacting]
     Active Substance: ZOLPIDEM TARTRATE
     Indication: INSOMNIA
     Dosage: 10 MILLIGRAM, ONCE A DAY
     Route: 048
     Dates: start: 20171122, end: 20171124
  25. DEPREXETIN [Interacting]
     Active Substance: FLUOXETINE HYDROCHLORIDE
     Indication: DIABETES MELLITUS
  26. DULOXETINE HYDROCHLORIDE. [Concomitant]
     Active Substance: DULOXETINE HYDROCHLORIDE
     Indication: FIBROMYALGIA
     Dosage: 120 MILLIGRAM
     Route: 065
  27. METFORMIN [Concomitant]
     Active Substance: METFORMIN HYDROCHLORIDE
     Indication: BLOOD GLUCOSE FLUCTUATION
     Dosage: UNK
     Route: 065
  28. METFORMIN [Concomitant]
     Active Substance: METFORMIN HYDROCHLORIDE
     Indication: INSOMNIA

REACTIONS (16)
  - Off label use [Recovered/Resolved]
  - Fibromyalgia [Unknown]
  - Product prescribing error [Unknown]
  - Initial insomnia [Recovered/Resolved]
  - Poor quality sleep [Recovered/Resolved]
  - Abnormal dreams [Recovered/Resolved]
  - Blood glucose fluctuation [Recovered/Resolved]
  - Dry mouth [Recovering/Resolving]
  - Sleep disorder [Recovered/Resolved]
  - Nightmare [Recovered/Resolved]
  - Impaired self-care [Unknown]
  - Insomnia [Recovered/Resolved]
  - Drug ineffective for unapproved indication [Unknown]
  - Somnolence [Recovering/Resolving]
  - Drug interaction [Unknown]
  - Pain [Unknown]
